FAERS Safety Report 5535156-0 (Version None)
Quarter: 2007Q4

REPORT INFORMATION
  Report Type: 
  Country: None (occurrence: None)
  Receive Date: 20071206
  Receipt Date: 20071127
  Transmission Date: 20080405
  Serious: Yes (Other)
  Sender: FDA-Public Use
  Company Number: PHBS2007NL19947

PATIENT
  Age: 47 Year
  Sex: Male

DRUGS (1)
  1. RITALIN [Suspect]

REACTIONS (4)
  - AGGRESSION [None]
  - HALLUCINATION, AUDITORY [None]
  - MENTAL DISORDER [None]
  - SUICIDE ATTEMPT [None]
